FAERS Safety Report 9911698 (Version 1)
Quarter: 2014Q1

REPORT INFORMATION
  Report Type: Spontaneous
  Country: JP (occurrence: JP)
  Receive Date: 20140219
  Receipt Date: 20140219
  Transmission Date: 20141002
  Serious: Yes (Other)
  Sender: FDA-Public Use
  Company Number: JP-OTSUKA-JP-2014-11070

PATIENT
  Age: 92 Year
  Sex: Female

DRUGS (2)
  1. SAMSCA [Suspect]
     Indication: CARDIAC FAILURE
     Dosage: 3.75 MG MILLIGRAM(S), DAILY DOSE
     Route: 048
  2. SELARA [Concomitant]
     Dosage: 50 MG MILLIGRAM(S), DAILY DOSE
     Route: 048

REACTIONS (3)
  - Altered state of consciousness [Unknown]
  - Hypernatraemia [Recovered/Resolved]
  - Dehydration [Unknown]
